FAERS Safety Report 4531128-3 (Version None)
Quarter: 2004Q4

REPORT INFORMATION
  Report Type: 
  Country: None (occurrence: None)
  Receive Date: 20041130
  Receipt Date: 20040816
  Transmission Date: 20050328
  Serious: Yes (Disabling, Other)
  Sender: FDA-Public Use
  Company Number: WAES 0408USA01312

PATIENT
  Age: 61 Year
  Sex: Male
  Weight: 63.5036 kg

DRUGS (2)
  1. FOSAMAX [Suspect]
     Indication: OSTEOPENIA
     Dosage: 70MG/WKY/PO
     Route: 048
     Dates: start: 20020101
  2. FOSAMAX [Suspect]
     Indication: OSTEOPENIA
     Dosage: 35MG/WKY/PO
     Route: 048
     Dates: end: 20040701

REACTIONS (1)
  - OESOPHAGITIS ULCERATIVE [None]
